FAERS Safety Report 16108072 (Version 7)
Quarter: 2019Q2

REPORT INFORMATION
  Report Type: Spontaneous
  Country: US (occurrence: US)
  Receive Date: 20190322
  Receipt Date: 20190626
  Transmission Date: 20190711
  Serious: Yes (Hospitalization)
  Sender: FDA-Public Use
  Company Number: US-ACTELION-A-NJ2019-188042

PATIENT
  Age: 62 Year
  Sex: Male
  Weight: 71.2 kg

DRUGS (3)
  1. ELIQUIS [Concomitant]
     Active Substance: APIXABAN
  2. VELETRI [Suspect]
     Active Substance: EPOPROSTENOL
     Indication: PULMONARY ARTERIAL HYPERTENSION
     Dosage: 26 NG/KG, PER MIN
     Route: 042
     Dates: start: 201708
  3. LETAIRIS [Concomitant]
     Active Substance: AMBRISENTAN

REACTIONS (11)
  - Product leakage [Unknown]
  - Device connection issue [Recovered/Resolved]
  - Pneumonia [Unknown]
  - Device occlusion [Unknown]
  - Device related sepsis [Recovered/Resolved]
  - Device breakage [Unknown]
  - Device leakage [Unknown]
  - Device related infection [Unknown]
  - Catheter site haemorrhage [Unknown]
  - Complication associated with device [Recovered/Resolved]
  - Catheter management [Recovered/Resolved]

NARRATIVE: CASE EVENT DATE: 20190308
